FAERS Safety Report 5248693-3 (Version None)
Quarter: 2007Q1

REPORT INFORMATION
  Report Type: 
  Country: None (occurrence: None)
  Receive Date: 20070228
  Receipt Date: 20070222
  Transmission Date: 20070707
  Serious: Yes (Other)
  Sender: FDA-Public Use
  Company Number: CA-JNJFOC-20060505688

PATIENT
  Sex: Female

DRUGS (16)
  1. REMICADE [Suspect]
     Route: 042
  2. REMICADE [Suspect]
     Route: 042
  3. REMICADE [Suspect]
     Route: 042
  4. REMICADE [Suspect]
     Dosage: 6 INFUSIONS ON UNKNOWN DATES
     Route: 042
  5. REMICADE [Suspect]
     Route: 042
  6. REMICADE [Suspect]
     Route: 042
  7. REMICADE [Suspect]
     Route: 042
  8. REMICADE [Suspect]
     Indication: RHEUMATOID ARTHRITIS
     Route: 042
  9. SYNTHROID [Concomitant]
     Dosage: 0.088 ONCE DAILY
  10. PREDNISONE [Concomitant]
  11. BENADRYL [Concomitant]
     Indication: PREMEDICATION
  12. METHOTREXATE [Concomitant]
  13. VOLTAREN [Concomitant]
  14. LOSEC [Concomitant]
  15. CALICUM [Concomitant]
  16. LEUCOVORIN CALCIUM [Concomitant]

REACTIONS (1)
  - HEPATIC NEOPLASM MALIGNANT [None]
